FAERS Safety Report 9331544 (Version 1)
Quarter: 2013Q2

REPORT INFORMATION
  Report Type: Spontaneous
  Country: US (occurrence: US)
  Receive Date: 20130605
  Receipt Date: 20130605
  Transmission Date: 20140414
  Serious: No
  Sender: FDA-Public Use
  Company Number: US-PFIZER INC-2013167342

PATIENT
  Age: 70 Year
  Sex: Female
  Weight: 87.1 kg

DRUGS (2)
  1. PREMARIN [Suspect]
     Indication: ATROPHIC VULVOVAGINITIS
     Dosage: 0.625 MG, 3X/WEEK
     Route: 067
     Dates: start: 201305
  2. LEVOTHYROXINE SODIUM [Interacting]
     Indication: HYPOTHYROIDISM
     Dosage: 50 MG, 1X/DAY

REACTIONS (4)
  - Drug interaction [Unknown]
  - Drug effect decreased [Unknown]
  - Nervousness [Unknown]
  - Headache [Unknown]
